FAERS Safety Report 5128052-4 (Version None)
Quarter: 2006Q4

REPORT INFORMATION
  Report Type: 
  Country: None (occurrence: None)
  Receive Date: 20061010
  Receipt Date: 20060927
  Transmission Date: 20070319
  Serious: Yes (Hospitalization)
  Sender: FDA-Public Use
  Company Number: 2006117367

PATIENT
  Age: 78 Year
  Sex: Male

DRUGS (8)
  1. SPIRONOLACTONE [Suspect]
     Dosage: (50 MG), ORAL
     Route: 048
     Dates: end: 20060713
  2. LISINOPRIL [Suspect]
     Indication: HYPERTENSION
     Dosage: (10 MG), ORAL
     Route: 048
     Dates: end: 20060713
  3. DIGOXIN [Suspect]
     Dosage: (125 MCG), ORAL
     Route: 048
     Dates: end: 20060713
  4. FUROSEMIDE [Suspect]
     Dosage: (40 MG), ORAL
     Route: 048
     Dates: end: 20060713
  5. DOXAZOSIN (DOXAZOSIN) [Concomitant]
  6. SERETIDE (FLU7TICASONE PROPIONATE, SALMETEROL XINAFOATE) [Concomitant]
  7. SIMVASTATIN [Concomitant]
  8. WARFARIN SODIUM [Concomitant]

REACTIONS (3)
  - BLOOD ELECTROLYTES ABNORMAL [None]
  - BLOOD UREA ABNORMAL [None]
  - HYPERKALAEMIA [None]
